FAERS Safety Report 12726895 (Version 1)
Quarter: 2016Q3

REPORT INFORMATION
  Report Type: Spontaneous
  Country: US (occurrence: US)
  Receive Date: 20160908
  Receipt Date: 20160908
  Transmission Date: 20161109
  Serious: Yes (Hospitalization, Other)
  Sender: FDA-Public Use
  Company Number: US-ROCHE-1823130

PATIENT
  Age: 51 Year
  Sex: Female

DRUGS (30)
  1. POTIGA [Suspect]
     Active Substance: EZOGABINE
     Indication: SEIZURE
     Route: 065
     Dates: start: 20130708
  2. NEURONTIN [Suspect]
     Active Substance: GABAPENTIN
     Indication: PRODUCT USED FOR UNKNOWN INDICATION
     Route: 065
  3. TRAMADOL. [Suspect]
     Active Substance: TRAMADOL
     Indication: PRODUCT USED FOR UNKNOWN INDICATION
     Route: 065
  4. HYDROCODONE BITARTRATE AND ACETAMINOPHEN [Concomitant]
     Active Substance: ACETAMINOPHEN\HYDROCODONE BITARTRATE
  5. CLEOCIN [Concomitant]
     Active Substance: CLINDAMYCIN PHOSPHATE
  6. CATAPRES [Concomitant]
     Active Substance: CLONIDINE HYDROCHLORIDE
  7. DURICEF [Suspect]
     Active Substance: CEFADROXIL
     Indication: PRODUCT USED FOR UNKNOWN INDICATION
     Route: 065
  8. LORTAB (UNITED STATES) [Concomitant]
  9. CLARITIN (UNITED STATES) [Concomitant]
  10. LASIX [Concomitant]
     Active Substance: FUROSEMIDE
  11. VALIUM [Suspect]
     Active Substance: DIAZEPAM
     Indication: PRODUCT USED FOR UNKNOWN INDICATION
     Route: 065
  12. CECLOR [Suspect]
     Active Substance: CEFACLOR
     Indication: PRODUCT USED FOR UNKNOWN INDICATION
     Route: 065
  13. ZANAFLEX [Concomitant]
     Active Substance: TIZANIDINE HYDROCHLORIDE
  14. ELAVIL [Concomitant]
     Active Substance: AMITRIPTYLINE HYDROCHLORIDE
  15. PHENERGAN (UNITED STATES) [Concomitant]
  16. FLEXERIL [Concomitant]
     Active Substance: CYCLOBENZAPRINE HYDROCHLORIDE
  17. TOPAMAX [Suspect]
     Active Substance: TOPIRAMATE
     Indication: PRODUCT USED FOR UNKNOWN INDICATION
     Route: 065
  18. STADOL [Concomitant]
     Active Substance: BUTORPHANOL TARTRATE
  19. MIRALAX [Concomitant]
     Active Substance: POLYETHYLENE GLYCOL 3350
  20. ZOFRAN [Concomitant]
     Active Substance: ONDANSETRON HYDROCHLORIDE
  21. TORADOL [Suspect]
     Active Substance: KETOROLAC TROMETHAMINE
     Indication: PRODUCT USED FOR UNKNOWN INDICATION
     Route: 065
  22. VITAMIN B2 [Concomitant]
     Active Substance: RIBOFLAVIN
  23. ALUMINUM HYDROXIDE + SIMETHICONE [Concomitant]
  24. METHOCARBAMOL. [Concomitant]
     Active Substance: METHOCARBAMOL
  25. COLACE [Concomitant]
     Active Substance: DOCUSATE SODIUM
  26. MILK OF MAGNESIA [Concomitant]
     Active Substance: MAGNESIUM HYDROXIDE
  27. CEPACOL (UNITED STATES) [Concomitant]
  28. LIDOCAINE. [Suspect]
     Active Substance: LIDOCAINE
     Indication: PRODUCT USED FOR UNKNOWN INDICATION
     Route: 065
  29. LIDODERM [Concomitant]
     Active Substance: LIDOCAINE
  30. PEPCID [Concomitant]
     Active Substance: FAMOTIDINE

REACTIONS (34)
  - Pruritus allergic [Unknown]
  - Nerve block [Unknown]
  - Pseudarthrosis [Unknown]
  - Muscular weakness [Unknown]
  - Immune system disorder [Unknown]
  - Foraminotomy [Unknown]
  - Grip strength decreased [Unknown]
  - Intervertebral disc protrusion [Unknown]
  - Nervous system disorder [Unknown]
  - Drain placement [Recovering/Resolving]
  - Sensory loss [Unknown]
  - Rash [Unknown]
  - Spinal decompression [Unknown]
  - Neck pain [Recovering/Resolving]
  - Spinal pain [Unknown]
  - Muscle spasms [Unknown]
  - Visual acuity reduced [Unknown]
  - Endocrine disorder [Unknown]
  - Pain in extremity [Unknown]
  - Respiratory arrest [Unknown]
  - Tenderness [Unknown]
  - Nerve compression [Unknown]
  - Discomfort [Unknown]
  - Procedural nausea [Unknown]
  - Burning sensation [Unknown]
  - Injury [Unknown]
  - Spinal laminectomy [Unknown]
  - Reflex test abnormal [Unknown]
  - Drug hypersensitivity [Unknown]
  - Arthrodesis [Unknown]
  - Back pain [Unknown]
  - Medical device implantation [Unknown]
  - Procedural vomiting [Unknown]
  - Hypoaesthesia [Unknown]

NARRATIVE: CASE EVENT DATE: 20130715
